FAERS Safety Report 14952814 (Version 1)
Quarter: 2018Q2

REPORT INFORMATION
  Report Type: Spontaneous
  Country: GB (occurrence: GB)
  Receive Date: 20180530
  Receipt Date: 20180530
  Transmission Date: 20180711
  Serious: Yes (Other)
  Sender: FDA-Public Use
  Company Number: GB-LPDUSPRD-20180914

PATIENT
  Age: 51 Year
  Sex: Female
  Weight: 81.9 kg

DRUGS (4)
  1. FERINJECT [Suspect]
     Active Substance: FERRIC CARBOXYMALTOSE
     Dosage: 250 OR 500 IN SALINE SOLUTION
     Route: 042
     Dates: start: 20170101, end: 20180401
  2. MONOFER [Suspect]
     Active Substance: IRON ISOMALTOSIDE 1000
     Dosage: 250 OR 500 IN SALINE SOLUTION
     Route: 051
     Dates: start: 20170101, end: 20180401
  3. IRON SULFATE [Concomitant]
     Active Substance: FERROUS SULFATE ANHYDROUS
     Dosage: 325 MG
     Route: 065
  4. VITAMIN C [Concomitant]
     Active Substance: ASCORBIC ACID
     Dosage: UNKNOWN DOSE
     Route: 065

REACTIONS (2)
  - Paraesthesia [Unknown]
  - Spinal pain [Unknown]

NARRATIVE: CASE EVENT DATE: 20170201
